FAERS Safety Report 11860523 (Version 1)
Quarter: 2015Q4

REPORT INFORMATION
  Report Type: Report from Study
  Country: DE (occurrence: DE)
  Receive Date: 20151222
  Receipt Date: 20151222
  Transmission Date: 20160305
  Serious: Yes (Hospitalization)
  Sender: FDA-Public Use
  Company Number: DE-TEVA-620476ACC

PATIENT
  Age: 76 Year
  Sex: Male

DRUGS (2)
  1. BENDAMUSTINE HYDROCHLORIDE [Suspect]
     Active Substance: BENDAMUSTINE HYDROCHLORIDE
     Indication: MANTLE CELL LYMPHOMA
     Dosage: (1 IN 4 WEEK)
     Route: 042
     Dates: start: 20150401
  2. RITUXIMAB [Suspect]
     Active Substance: RITUXIMAB
     Indication: MANTLE CELL LYMPHOMA
     Dosage: (1 IN 8 WEEK)
     Route: 042
     Dates: start: 20150401

REACTIONS (1)
  - Skin neoplasm excision [Not Recovered/Not Resolved]

NARRATIVE: CASE EVENT DATE: 20151209
